FAERS Safety Report 20365291 (Version 3)
Quarter: 2022Q4

REPORT INFORMATION
  Report Type: Spontaneous
  Country: US (occurrence: US)
  Receive Date: 20220122
  Receipt Date: 20221207
  Transmission Date: 20230113
  Serious: Yes (Hospitalization)
  Sender: FDA-Public Use
  Company Number: US-GILEAD-2022-0565941

PATIENT
  Sex: Female
  Weight: 108.86 kg

DRUGS (46)
  1. COMPLERA [Suspect]
     Active Substance: EMTRICITABINE\RILPIVIRINE HYDROCHLORIDE\TENOFOVIR DISOPROXIL FUMARATE
     Indication: HIV infection
     Dosage: UNK
     Route: 048
     Dates: start: 2009
  2. TRUVADA [Suspect]
     Active Substance: EMTRICITABINE\TENOFOVIR DISOPROXIL FUMARATE
     Indication: HIV infection
     Dosage: UNK
     Route: 048
     Dates: start: 2009
  3. TRUVADA [Suspect]
     Active Substance: EMTRICITABINE\TENOFOVIR DISOPROXIL FUMARATE
     Dosage: UNK
     Route: 048
     Dates: start: 2004, end: 2010
  4. COMBIVIR [Concomitant]
     Active Substance: LAMIVUDINE\ZIDOVUDINE
  5. ISENTRESS [Concomitant]
     Active Substance: RALTEGRAVIR POTASSIUM
  6. JULUCA [Concomitant]
     Active Substance: DOLUTEGRAVIR SODIUM\RILPIVIRINE HYDROCHLORIDE
  7. NORVIR [Concomitant]
     Active Substance: RITONAVIR
  8. PREZISTA [Concomitant]
     Active Substance: DARUNAVIR ETHANOLATE
  9. RETROVIR [Concomitant]
     Active Substance: ZIDOVUDINE
  10. SYMTUZA [Concomitant]
     Active Substance: COBICISTAT\DARUNAVIR\EMTRICITABINE\TENOFOVIR ALAFENAMIDE
  11. VIDEX [Concomitant]
     Active Substance: DIDANOSINE
  12. PREZCOBIX [Concomitant]
     Active Substance: COBICISTAT\DARUNAVIR ETHANOLATE
  13. DAPSONE [Concomitant]
     Active Substance: DAPSONE
  14. ALEGRA [Concomitant]
  15. ASPIRIN [Concomitant]
     Active Substance: ASPIRIN
  16. OMEPRAZOLE [Concomitant]
     Active Substance: OMEPRAZOLE
  17. NYSTATIN [Concomitant]
     Active Substance: NYSTATIN
  18. AZITHROMYCIN [Concomitant]
     Active Substance: AZITHROMYCIN
  19. BACTRIM [Concomitant]
     Active Substance: SULFAMETHOXAZOLE\TRIMETHOPRIM
  20. PROAIR HFA [Concomitant]
     Active Substance: ALBUTEROL SULFATE
  21. CLINDAMYCIN [Concomitant]
     Active Substance: CLINDAMYCIN
  22. SYMBICORT [Concomitant]
     Active Substance: BUDESONIDE\FORMOTEROL FUMARATE DIHYDRATE
  23. METHYLPREDNISOLONE [Concomitant]
     Active Substance: METHYLPREDNISOLONE
  24. TRIAMCINOLONE [Concomitant]
     Active Substance: TRIAMCINOLONE
  25. CITALOPRAM [Concomitant]
     Active Substance: CITALOPRAM HYDROBROMIDE
  26. XANAX [Concomitant]
     Active Substance: ALPRAZOLAM
  27. ALBUTEROL SULFATE [Concomitant]
     Active Substance: ALBUTEROL SULFATE
  28. FLUOCINONIDE [Concomitant]
     Active Substance: FLUOCINONIDE
  29. PREDNISONE [Concomitant]
     Active Substance: PREDNISONE
  30. FLUCONAZOLE [Concomitant]
     Active Substance: FLUCONAZOLE
  31. OXYCODONE [Concomitant]
     Active Substance: OXYCODONE
  32. HYDROXYZINE [Concomitant]
     Active Substance: HYDROXYZINE HYDROCHLORIDE
  33. FEXOFENADINE [Concomitant]
     Active Substance: FEXOFENADINE HYDROCHLORIDE
  34. HYDROCODONE [Concomitant]
     Active Substance: HYDROCODONE
  35. NAPROXEN [Concomitant]
     Active Substance: NAPROXEN
  36. CLARITHROMYCIN [Concomitant]
     Active Substance: CLARITHROMYCIN
  37. RANITIDINE [Concomitant]
     Active Substance: RANITIDINE
  38. CLOTRIMAZOLE [Concomitant]
     Active Substance: CLOTRIMAZOLE
  39. DOXEPIN [Concomitant]
     Active Substance: DOXEPIN
  40. TRAZODONE [Concomitant]
     Active Substance: TRAZODONE HYDROCHLORIDE
  41. BUPROPION [Concomitant]
     Active Substance: BUPROPION
  42. PAROXETINE [Concomitant]
     Active Substance: PAROXETINE
  43. MONTELUKAST [Concomitant]
     Active Substance: MONTELUKAST SODIUM
  44. DULERA [Concomitant]
     Active Substance: FORMOTEROL FUMARATE DIHYDRATE\MOMETASONE FUROATE
  45. AMLODIPINE [Concomitant]
     Active Substance: AMLODIPINE BESYLATE
  46. BENZONATATE [Concomitant]
     Active Substance: BENZONATATE

REACTIONS (8)
  - Ankle fracture [Not Recovered/Not Resolved]
  - Bone demineralisation [Unknown]
  - Bone density decreased [Not Recovered/Not Resolved]
  - Pain [Not Recovered/Not Resolved]
  - Emotional distress [Not Recovered/Not Resolved]
  - Anxiety [Not Recovered/Not Resolved]
  - Anhedonia [Not Recovered/Not Resolved]
  - General physical health deterioration [Unknown]

NARRATIVE: CASE EVENT DATE: 20120101
